FAERS Safety Report 4750441-8 (Version None)
Quarter: 2005Q3

REPORT INFORMATION
  Report Type: 
  Country: None (occurrence: None)
  Receive Date: 20050823
  Receipt Date: 20050812
  Transmission Date: 20060218
  Serious: Yes (Other)
  Sender: FDA-Public Use
  Company Number: PHFR2005GB02741

PATIENT
  Age: 62 Year
  Sex: Female
  Weight: 96 kg

DRUGS (5)
  1. ZOMETA [Suspect]
     Indication: MULTIPLE MYELOMA
     Dosage: 4 MG, QMO
     Route: 042
     Dates: start: 20030201
  2. FENTANYL [Concomitant]
     Indication: PAIN
     Dosage: 75 UNK
     Route: 062
  3. ORAMORPH SR [Concomitant]
     Indication: PAIN
     Dosage: 10 UNK
     Route: 048
  4. AMITRIPTYLINE HCL [Concomitant]
     Dosage: 75 MG NOCTE
  5. IFN ALPHA [Concomitant]
     Indication: MULTIPLE MYELOMA
     Dosage: 3 ML, QW3

REACTIONS (3)
  - ASEPTIC NECROSIS BONE [None]
  - BONE DISORDER [None]
  - PAIN IN JAW [None]
